FAERS Safety Report 8235091-3 (Version None)
Quarter: 2012Q1

REPORT INFORMATION
  Report Type: 
  Country: None (occurrence: None)
  Receive Date: 20120326
  Receipt Date: 20120320
  Transmission Date: 20120608
  Serious: Yes (Other)
  Sender: FDA-Public Use
  Company Number: BR-PFIZER INC-2012062992

PATIENT
  Age: 48 Year
  Sex: Female
  Weight: 72 kg

DRUGS (1)
  1. SUTENT [Suspect]
     Indication: RENAL CANCER
     Dosage: 37.5 MG, 1X/DAY
     Route: 048
     Dates: start: 20110707

REACTIONS (12)
  - WOUND HAEMORRHAGE [None]
  - ABSCESS [None]
  - COUGH [None]
  - HYPERTENSION [None]
  - IMPAIRED HEALING [None]
  - PAIN IN EXTREMITY [None]
  - NAUSEA [None]
  - REFLUX GASTRITIS [None]
  - NAIL DISORDER [None]
  - INFLUENZA [None]
  - LIMB INJURY [None]
  - PYREXIA [None]
